FAERS Safety Report 11686779 (Version 1)
Quarter: 2015Q4

REPORT INFORMATION
  Report Type: Report from Study
  Country: GB (occurrence: GB)
  Receive Date: 20151030
  Receipt Date: 20151030
  Transmission Date: 20160304
  Serious: Yes (Other)
  Sender: FDA-Public Use
  Company Number: GB-ABBVIE-15K-167-1488976-00

PATIENT
  Age: 74 Year
  Sex: Female

DRUGS (1)
  1. HUMIRA [Suspect]
     Active Substance: ADALIMUMAB
     Indication: RHEUMATOID ARTHRITIS
     Route: 058
     Dates: start: 20080213, end: 20091020

REACTIONS (2)
  - Skin lesion [Unknown]
  - Basal cell carcinoma [Unknown]

NARRATIVE: CASE EVENT DATE: 20141216
